FAERS Safety Report 10395768 (Version 1)
Quarter: 2014Q1

REPORT INFORMATION
  Report Type: Spontaneous
  Country: US (occurrence: None)
  Receive Date: 20130107
  Receipt Date: 20130107
  Transmission Date: 20141002
  Serious: No
  Sender: FDA-Public Use
  Company Number: PHEH2012US011976

PATIENT
  Age: 49 Year
  Sex: Female
  Weight: 99.88 kg

DRUGS (3)
  1. GILENYA (FTY) CAPSULE, 0.5MG [Suspect]
     Indication: MULTIPLE SCLEROSIS
     Route: 048
     Dates: start: 20101214
  2. VITAMIN D (ERGOCALCIFEROL) [Concomitant]
  3. LEXAPRO (ESCITALOPRAM OXALATE) [Concomitant]

REACTIONS (6)
  - Balance disorder [None]
  - Hemiparesis [None]
  - Alopecia [None]
  - Lymphocyte count decreased [None]
  - Headache [None]
  - Dizziness [None]
